FAERS Safety Report 6966353-5 (Version None)
Quarter: 2010Q3

REPORT INFORMATION
  Report Type: 
  Country: None (occurrence: None)
  Receive Date: 20100903
  Receipt Date: 20100826
  Transmission Date: 20110219
  Serious: Yes (Hospitalization)
  Sender: FDA-Public Use
  Company Number: DE-ROCHE-724079

PATIENT
  Age: 55 Year
  Sex: Male
  Weight: 49 kg

DRUGS (10)
  1. BEVACIZUMAB [Suspect]
     Route: 042
     Dates: start: 20100402
  2. IRINOTECAN HCL [Suspect]
     Route: 042
     Dates: start: 20100402
  3. FLUOROURACIL [Suspect]
     Dosage: FORM: IV BOLUS
     Route: 042
     Dates: start: 20100402
  4. LEUCOVORIN CALCIUM [Suspect]
     Route: 042
     Dates: start: 20100402
  5. METOPROLOL SUCCINATE [Concomitant]
     Dosage: REPORTED AS BELOC-ZOK MITE (METOPROLOL SUCCINATE)
     Dates: start: 20100401
  6. RAMIPRIL [Concomitant]
     Dates: start: 20100401
  7. KALINOR RETARD [Concomitant]
     Dates: end: 20080803
  8. SEVREDOL [Concomitant]
     Dates: end: 20080803
  9. METAMIZOLE SODIUM [Concomitant]
  10. TOREM [Concomitant]

REACTIONS (1)
  - WEIGHT DECREASED [None]
